FAERS Safety Report 11210954 (Version 3)
Quarter: 2015Q3

REPORT INFORMATION
  Report Type: Report from Study
  Country: TR (occurrence: TR)
  Receive Date: 20150623
  Receipt Date: 20150727
  Transmission Date: 20151125
  Serious: Yes (Hospitalization)
  Sender: FDA-Public Use
  Company Number: TR-ABBVIE-15K-161-1412827-00

PATIENT
  Age: 34 Year
  Sex: Female
  Weight: 95 kg

DRUGS (1)
  1. HUMIRA [Suspect]
     Active Substance: ADALIMUMAB
     Indication: PSORIATIC ARTHROPATHY
     Route: 058
     Dates: start: 20150106, end: 20150619

REACTIONS (3)
  - Ankle fracture [Recovered/Resolved]
  - Deep vein thrombosis [Recovered/Resolved]
  - Tendon rupture [Recovered/Resolved]

NARRATIVE: CASE EVENT DATE: 20150504
